FAERS Safety Report 9892082 (Version 2)
Quarter: 2014Q2

REPORT INFORMATION
  Report Type: Spontaneous
  Country: US (occurrence: US)
  Receive Date: 20140212
  Receipt Date: 20140425
  Transmission Date: 20141212
  Serious: Yes (Death)
  Sender: FDA-Public Use
  Company Number: US-GLAXOSMITHKLINE-A1060704A

PATIENT
  Age: 73 Year
  Sex: Male

DRUGS (1)
  1. VOTRIENT [Suspect]
     Indication: LIPOSARCOMA
     Dosage: 800MG PER DAY
     Route: 065
     Dates: start: 20140107

REACTIONS (2)
  - Disease progression [Fatal]
  - Off label use [Unknown]
